FAERS Safety Report 10347648 (Version 1)
Quarter: 2014Q3

REPORT INFORMATION
  Report Type: Spontaneous
  Country: GB (occurrence: GB)
  Receive Date: 20140729
  Receipt Date: 20140729
  Transmission Date: 20150326
  Serious: Yes (Hospitalization, Other)
  Sender: FDA-Public Use
  Company Number: GB-ACTELION-A-CH2014-102310

PATIENT
  Age: 30 Year
  Sex: Male

DRUGS (6)
  1. SILDENAFIL [Concomitant]
     Active Substance: SILDENAFIL
  2. AMBRISENTAN [Concomitant]
     Active Substance: AMBRISENTAN
  3. WARFARIN [Concomitant]
     Active Substance: WARFARIN
  4. SPIRONOLACTONE. [Concomitant]
     Active Substance: SPIRONOLACTONE
  5. VELETRI [Suspect]
     Active Substance: EPOPROSTENOL
     Indication: PULMONARY ARTERIAL HYPERTENSION
     Dosage: 2 NG/KG, PER MIN
     Route: 042
     Dates: start: 20131202, end: 20140424
  6. OMEPRAZOLE. [Concomitant]
     Active Substance: OMEPRAZOLE

REACTIONS (10)
  - Blood culture positive [Recovered/Resolved]
  - Inadequate aseptic technique in use of product [Recovered/Resolved]
  - C-reactive protein increased [Recovered/Resolved]
  - Bacteraemia [Recovered/Resolved]
  - Pyrexia [Recovered/Resolved]
  - Central venous catheter removal [Recovered/Resolved]
  - Device related infection [Recovered/Resolved]
  - Device connection issue [Unknown]
  - Chills [Recovered/Resolved]
  - Enterobacter test positive [Recovered/Resolved]

NARRATIVE: CASE EVENT DATE: 20140329
